FAERS Safety Report 13872610 (Version 2)
Quarter: 2018Q1

REPORT INFORMATION
  Report Type: Not Available
  Country: CA (occurrence: CA)
  Receive Date: 20170816
  Receipt Date: 20180124
  Transmission Date: 20180508
  Serious: Yes (Other)
  Sender: FDA-Public Use
  Company Number: CA-CELGENEUS-CAN-20170801352

PATIENT
  Age: 69 Year
  Sex: Male

DRUGS (16)
  1. EXJADE [Suspect]
     Active Substance: DEFERASIROX
     Indication: MYELODYSPLASTIC SYNDROME
     Dosage: 1000 MILLIGRAM
     Route: 048
     Dates: start: 20091112
  2. EXJADE [Suspect]
     Active Substance: DEFERASIROX
     Dosage: 2000 MILLIGRAM
     Route: 048
  3. EXJADE [Suspect]
     Active Substance: DEFERASIROX
     Dosage: 1750 MILLIGRAM
     Route: 048
  4. TESTOSTERONE. [Concomitant]
     Active Substance: TESTOSTERONE
     Indication: PRODUCT USED FOR UNKNOWN INDICATION
     Route: 062
  5. EXJADE [Suspect]
     Active Substance: DEFERASIROX
     Dosage: 2000 MILLIGRAM
     Route: 048
     Dates: start: 20150305
  6. EXJADE [Suspect]
     Active Substance: DEFERASIROX
     Dosage: 2000 MILLIGRAM
     Route: 048
  7. EXJADE [Suspect]
     Active Substance: DEFERASIROX
     Dosage: 1000 MILLIGRAM
     Route: 048
  8. REVLIMID [Suspect]
     Active Substance: LENALIDOMIDE
     Indication: MYELODYSPLASTIC SYNDROME
     Route: 048
     Dates: start: 20100824, end: 201103
  9. PRADAXA [Concomitant]
     Active Substance: DABIGATRAN ETEXILATE MESYLATE
     Indication: PRODUCT USED FOR UNKNOWN INDICATION
     Route: 065
  10. EXJADE [Suspect]
     Active Substance: DEFERASIROX
     Dosage: 500 MILLIGRAM
     Route: 048
     Dates: start: 20150916
  11. EXJADE [Suspect]
     Active Substance: DEFERASIROX
     Dosage: 1500 MILLIGRAM
     Route: 048
  12. EXJADE [Suspect]
     Active Substance: DEFERASIROX
     Dosage: 1750 MILLIGRAM
     Route: 048
  13. EXJADE [Suspect]
     Active Substance: DEFERASIROX
     Dosage: 2500 MILLIGRAM
     Route: 048
  14. EXJADE [Suspect]
     Active Substance: DEFERASIROX
     Dosage: 1750 MILLIGRAM
     Route: 048
  15. DIGOXIN. [Concomitant]
     Active Substance: DIGOXIN
     Indication: PRODUCT USED FOR UNKNOWN INDICATION
     Route: 065
  16. EXJADE [Suspect]
     Active Substance: DEFERASIROX
     Dosage: 1500 MILLIGRAM
     Route: 048

REACTIONS (14)
  - Atrial flutter [Recovered/Resolved]
  - Blood creatinine increased [Not Recovered/Not Resolved]
  - Tooth infection [Unknown]
  - Neutrophil count decreased [Unknown]
  - Extrasystoles [Unknown]
  - Gastrointestinal motility disorder [Unknown]
  - Arrhythmia [Unknown]
  - Red blood cell count decreased [Unknown]
  - Serum ferritin increased [Recovering/Resolving]
  - Diarrhoea [Not Recovered/Not Resolved]
  - Pneumonia bacterial [Recovered/Resolved]
  - Renal impairment [Unknown]
  - Heart rate irregular [Unknown]
  - Heart rate increased [Unknown]

NARRATIVE: CASE EVENT DATE: 20110322
